FAERS Safety Report 22134578 (Version 1)
Quarter: 2023Q1

REPORT INFORMATION
  Report Type: Spontaneous
  Country: US (occurrence: US)
  Receive Date: 20230324
  Receipt Date: 20230324
  Transmission Date: 20230418
  Serious: Yes (Other)
  Sender: FDA-Public Use
  Company Number: US-MYLANLABS-2023M1030410

PATIENT
  Age: 23 Year
  Sex: Female

DRUGS (4)
  1. ALBUTEROL [Suspect]
     Active Substance: ALBUTEROL
     Indication: Sinus node dysfunction
     Dosage: UNK
     Route: 065
  2. ALBUTEROL [Suspect]
     Active Substance: ALBUTEROL
     Dosage: UNK, BID (REDUCED TO TWICE A DAY)
     Route: 065
  3. MIDODRINE [Suspect]
     Active Substance: MIDODRINE
     Indication: Sinus node dysfunction
     Dosage: UNK
     Route: 065
  4. THEOPHYLLINE [Suspect]
     Active Substance: THEOPHYLLINE
     Indication: Sinus node dysfunction
     Dosage: 150 MILLIGRAM, BID
     Route: 065

REACTIONS (3)
  - Drug ineffective for unapproved indication [Unknown]
  - Maternal exposure during pregnancy [Unknown]
  - Off label use [Unknown]
